FAERS Safety Report 7406444-8 (Version None)
Quarter: 2011Q2

REPORT INFORMATION
  Report Type: 
  Country: None (occurrence: None)
  Receive Date: 20110411
  Receipt Date: 20110407
  Transmission Date: 20111010
  Serious: Yes (Death)
  Sender: FDA-Public Use
  Company Number: PHHO2011DE06158

PATIENT
  Sex: Female
  Weight: 79 kg

DRUGS (9)
  1. FTY [Suspect]
     Indication: MULTIPLE SCLEROSIS
     Dosage: 0.5 MG, UNK
     Dates: start: 20100204
  2. SIMVAR [Concomitant]
  3. MIRTAZAPINE [Concomitant]
  4. NEURONTIN [Concomitant]
  5. LOSARTAN [Concomitant]
  6. LYRICA [Concomitant]
  7. SIMVASTATIN [Concomitant]
  8. LEVOTHYROXINE SODIUM [Concomitant]
  9. PK-MERZ [Concomitant]

REACTIONS (1)
  - MYOCARDIAL INFARCTION [None]
